FAERS Safety Report 24993529 (Version 1)
Quarter: 2025Q1

REPORT INFORMATION
  Report Type: Other
  Country: US (occurrence: US)
  Receive Date: 20250221
  Receipt Date: 20250221
  Transmission Date: 20250409
  Serious: Yes (Hospitalization)
  Sender: DEXCEL
  Company Number: US-DEXPHARM-2025-0941

PATIENT
  Age: 65 Year
  Sex: Male

DRUGS (1)
  1. DONEPEZIL HYDROCHLORIDE [Suspect]
     Active Substance: DONEPEZIL HYDROCHLORIDE
     Indication: Psychotic disorder

REACTIONS (1)
  - Parkinsonism [Unknown]
